FAERS Safety Report 6187246-X (Version None)
Quarter: 2009Q2

REPORT INFORMATION
  Report Type: 
  Country: None (occurrence: None)
  Receive Date: 20090512
  Receipt Date: 20090508
  Transmission Date: 20091009
  Serious: Yes (Life-Threatening)
  Sender: FDA-Public Use
  Company Number: PHHY2009IT17780

PATIENT

DRUGS (2)
  1. VALSARTAN [Suspect]
     Dosage: 80 MG
     Route: 048
     Dates: start: 20070101
  2. EUTIROX [Concomitant]
     Dosage: 50 MG DAILY
     Route: 048

REACTIONS (1)
  - CEREBRAL HAEMORRHAGE [None]
